FAERS Safety Report 7245975-0 (Version None)
Quarter: 2011Q1

REPORT INFORMATION
  Report Type: 
  Country: None (occurrence: None)
  Receive Date: 20110126
  Receipt Date: 20110120
  Transmission Date: 20110831
  Serious: Yes (Other)
  Sender: FDA-Public Use
  Company Number: PHHY2011NL04795

PATIENT
  Age: 67 Year
  Sex: Male

DRUGS (1)
  1. EXFORGE HCT [Suspect]
     Indication: HYPERTENSION
     Dosage: 5/160/12.5 MG (1 DF PER TIME)

REACTIONS (4)
  - VISUAL ACUITY REDUCED [None]
  - OCULAR HYPERAEMIA [None]
  - EYE DISORDER [None]
  - MALAISE [None]
